FAERS Safety Report 18508025 (Version 1)
Quarter: 2020Q4

REPORT INFORMATION
  Report Type: Spontaneous
  Country: US (occurrence: US)
  Receive Date: 20201116
  Receipt Date: 20201116
  Transmission Date: 20210114
  Serious: No
  Sender: FDA-Public Use
  Company Number: US-BAYER-2020-243888

PATIENT
  Sex: Male

DRUGS (4)
  1. LEVITRA [Suspect]
     Active Substance: VARDENAFIL HYDROCHLORIDE
     Indication: ERECTILE DYSFUNCTION
     Dosage: UNK
  2. STENDRA [Suspect]
     Active Substance: AVANAFIL
     Indication: ERECTILE DYSFUNCTION
     Dosage: UNK
  3. STAXYN [Suspect]
     Active Substance: VARDENAFIL HYDROCHLORIDE
     Indication: ERECTILE DYSFUNCTION
     Dosage: UNK
  4. VIAGRA [Suspect]
     Active Substance: SILDENAFIL CITRATE
     Indication: ERECTILE DYSFUNCTION
     Dosage: 100 MG ?
     Route: 048

REACTIONS (2)
  - Back pain [None]
  - Adverse drug reaction [None]

NARRATIVE: CASE EVENT DATE: 20201105
